FAERS Safety Report 5139124-2 (Version None)
Quarter: 2006Q4

REPORT INFORMATION
  Report Type: 
  Country: None (occurrence: None)
  Receive Date: 20061030
  Receipt Date: 20060622
  Transmission Date: 20070319
  Serious: No
  Sender: FDA-Public Use
  Company Number: US-GLAXOSMITHKLINE-A0610304A

PATIENT
  Sex: Male

DRUGS (3)
  1. ADVAIR HFA [Suspect]
     Indication: DRUG USE FOR UNKNOWN INDICATION
     Route: 055
  2. SENSODYNE-F [Suspect]
  3. ALBUTEROL [Concomitant]

REACTIONS (3)
  - CANDIDIASIS [None]
  - HERPES ZOSTER [None]
  - TONGUE DISCOLOURATION [None]
